FAERS Safety Report 18641901 (Version 1)
Quarter: 2020Q4

REPORT INFORMATION
  Report Type: Report from Study
  Country: ES (occurrence: ES)
  Receive Date: 20201221
  Receipt Date: 20201221
  Transmission Date: 20210114
  Serious: Yes (Death)
  Sender: FDA-Public Use
  Company Number: ES-GLAXOSMITHKLINE-ES2020EME251251

PATIENT
  Age: 70 Year
  Sex: Male

DRUGS (1)
  1. MEPOLIZUMAB SOLUTION FOR INJECTION IN UNSPECIFIED DEVICE [Suspect]
     Active Substance: MEPOLIZUMAB
     Indication: ASTHMA
     Dosage: 100 MG, Z, EVERY 28 DAYS
     Dates: start: 20201216, end: 20201216

REACTIONS (1)
  - COVID-19 [Fatal]
